FAERS Safety Report 10259153 (Version 2)
Quarter: 2014Q2

REPORT INFORMATION
  Report Type: Spontaneous
  Country: US (occurrence: US)
  Receive Date: 20140625
  Receipt Date: 20140625
  Transmission Date: 20141212
  Serious: Yes (Other)
  Sender: FDA-Public Use
  Company Number: US-ASTELLAS-2013US012177

PATIENT
  Sex: Male

DRUGS (1)
  1. VESICARE [Suspect]
     Indication: URGE INCONTINENCE
     Route: 048

REACTIONS (2)
  - Swelling face [Recovered/Resolved]
  - Peripheral swelling [Recovered/Resolved]
